FAERS Safety Report 16367145 (Version 2)
Quarter: 2022Q1

REPORT INFORMATION
  Report Type: Spontaneous
  Country: NO (occurrence: NO)
  Receive Date: 20190529
  Receipt Date: 20220209
  Transmission Date: 20220423
  Serious: Yes (Other)
  Sender: FDA-Public Use
  Company Number: NO-OTSUKA-2018_037800

PATIENT
  Age: 44 Year
  Sex: Male

DRUGS (4)
  1. ABILIFY [Suspect]
     Active Substance: ARIPIPRAZOLE
     Indication: Schizophrenia
     Dosage: UNK
     Route: 065
     Dates: start: 20090401, end: 20180326
  2. ZUCLOPENTHIXOL [Suspect]
     Active Substance: ZUCLOPENTHIXOL
     Indication: Product used for unknown indication
     Dosage: UNK
     Route: 065
  3. ZYPREXA [Suspect]
     Active Substance: OLANZAPINE
     Indication: Product used for unknown indication
     Dosage: UNK
     Route: 065
  4. ZYPADHERA [Suspect]
     Active Substance: OLANZAPINE PAMOATE
     Indication: Product used for unknown indication
     Dosage: UNK
     Route: 065

REACTIONS (15)
  - Chronic obstructive pulmonary disease [Unknown]
  - Erectile dysfunction [Unknown]
  - Parkinson^s disease [Unknown]
  - Enamel anomaly [Unknown]
  - Loss of personal independence in daily activities [Unknown]
  - Chills [Unknown]
  - Dysuria [Unknown]
  - Sleep disorder [Unknown]
  - Fatigue [Unknown]
  - Depression [Unknown]
  - Constipation [Unknown]
  - Diarrhoea [Unknown]
  - Product use issue [Unknown]
  - Intentional product misuse [Unknown]
  - Economic problem [Unknown]

NARRATIVE: CASE EVENT DATE: 20140401
